FAERS Safety Report 25664919 (Version 2)
Quarter: 2025Q3

REPORT INFORMATION
  Report Type: Spontaneous
  Country: US (occurrence: US)
  Receive Date: 20250811
  Receipt Date: 20250822
  Transmission Date: 20251021
  Serious: Yes (Hospitalization)
  Sender: PFIZER
  Company Number: US-PFIZER INC-202500159665

PATIENT
  Age: 13 Year
  Sex: Female
  Weight: 52.7 kg

DRUGS (5)
  1. RUXIENCE [Suspect]
     Active Substance: RITUXIMAB-PVVR
     Indication: Nephrotic syndrome
     Dates: start: 20250418
  2. RUXIENCE [Suspect]
     Active Substance: RITUXIMAB-PVVR
     Route: 042
     Dates: start: 20250418, end: 20250419
  3. CANDESARTAN [Concomitant]
     Active Substance: CANDESARTAN
     Indication: Blood pressure management
     Dosage: 32 MG, DAILY
  4. TACROLIMUS [Concomitant]
     Active Substance: TACROLIMUS
  5. ISRADIPINE [Concomitant]
     Active Substance: ISRADIPINE
     Indication: Blood pressure management

REACTIONS (4)
  - Off label use [Recovered/Resolved]
  - Vomiting [Recovered/Resolved]
  - Abdominal pain [Recovered/Resolved]
  - Malaise [Recovered/Resolved]

NARRATIVE: CASE EVENT DATE: 20250418
